FAERS Safety Report 7647407-7 (Version None)
Quarter: 2011Q3

REPORT INFORMATION
  Report Type: 
  Country: None (occurrence: None)
  Receive Date: 20110729
  Receipt Date: 20110729
  Transmission Date: 20111222
  Serious: No
  Sender: FDA-Public Use
  Company Number: None

PATIENT
  Sex: Female
  Weight: 38.6 kg

DRUGS (1)
  1. ORALONE [Suspect]
     Indication: APHTHOUS STOMATITIS
     Dosage: APPLY THIN AMOUNT TO AFFECTED AREA 4-6 TIMES A DAY ORALLY
     Route: 048
     Dates: start: 20110720

REACTIONS (6)
  - SKIN WARM [None]
  - JOINT SWELLING [None]
  - ERYTHEMA [None]
  - EXPIRED DRUG ADMINISTERED [None]
  - PRURITUS [None]
  - DRUG DISPENSING ERROR [None]
